FAERS Safety Report 24717329 (Version 1)
Quarter: 2024Q4

REPORT INFORMATION
  Report Type: Spontaneous
  Country: CA (occurrence: CA)
  Receive Date: 20241210
  Receipt Date: 20241210
  Transmission Date: 20250114
  Serious: Yes (Hospitalization, Other)
  Sender: FRESENIUS KABI
  Company Number: CA-FreseniusKabi-FK202418074

PATIENT
  Age: 11 Month
  Sex: Female

DRUGS (2)
  1. SMOFLIPID [Suspect]
     Active Substance: FISH OIL\MEDIUM-CHAIN TRIGLYCERIDES\OLIVE OIL\SOYBEAN OIL
     Indication: Parenteral nutrition
     Dosage: START AT 18:00 EACH EVENING AND RUN OVER 18 HOURS?FORM OF ADMINISTRATION: INJECTION FOR INFUSION?PRE
  2. DEXTROSE [Concomitant]
     Active Substance: DEXTROSE MONOHYDRATE
     Indication: Parenteral nutrition
     Dosage: PARENTERAL NUTRITION WITH GLUCOSE INFUSION RATE OF 17.9MG/KG/MIN

REACTIONS (8)
  - Pancreatitis [Recovering/Resolving]
  - Fat overload syndrome [Recovering/Resolving]
  - Accidental overdose [Recovering/Resolving]
  - Pyrexia [Recovering/Resolving]
  - Metabolic acidosis [Recovering/Resolving]
  - Respiratory failure [Recovering/Resolving]
  - Thrombocytopenia [Recovering/Resolving]
  - Anaemia [Recovering/Resolving]
